FAERS Safety Report 12823408 (Version 1)
Quarter: 2016Q4

REPORT INFORMATION
  Report Type: Spontaneous
  Country: US (occurrence: US)
  Receive Date: 20161006
  Receipt Date: 20161006
  Transmission Date: 20170207
  Serious: Yes (Hospitalization)
  Sender: FDA-Public Use
  Company Number: None

PATIENT
  Age: 57 Year
  Sex: Female
  Weight: 68.85 kg

DRUGS (1)
  1. RITUXAN [Suspect]
     Active Substance: RITUXIMAB
     Indication: RHEUMATOID ARTHRITIS
     Dosage: 1000 MG OTHER INTRAVENOUS EVERY 6 MONTHS
     Route: 042

REACTIONS (4)
  - Hypogammaglobulinaemia [None]
  - Herpes zoster [None]
  - Pneumonia [None]
  - Babesiosis [None]

NARRATIVE: CASE EVENT DATE: 20160324
